FAERS Safety Report 5315040-8 (Version None)
Quarter: 2007Q2

REPORT INFORMATION
  Report Type: 
  Country: None (occurrence: None)
  Receive Date: 20070502
  Receipt Date: 20070418
  Transmission Date: 20071010
  Serious: Yes (Hospitalization)
  Sender: FDA-Public Use
  Company Number: JP-ROCHE-374669

PATIENT
  Age: 12 Year
  Sex: Male
  Weight: 65 kg

DRUGS (5)
  1. TAMIFLU [Suspect]
     Route: 048
     Dates: start: 20020225, end: 20020302
  2. MEIACT [Concomitant]
     Dosage: GENERIC REPORTED AS CEFDITOREN PIVOXIL.
     Route: 048
     Dates: start: 20020225, end: 20020225
  3. MANNITOL [Concomitant]
     Indication: ENCEPHALITIS
     Route: 041
     Dates: start: 20020226, end: 20020301
  4. ZOVIRAX [Concomitant]
     Indication: ENCEPHALITIS HERPES
     Route: 041
     Dates: start: 20020226, end: 20020301
  5. HALOSPOR [Concomitant]
     Dosage: GENERIC REPORTED AS CEFOTIAM HYDROCHLORIDE.
     Route: 041
     Dates: start: 20020226, end: 20020302

REACTIONS (1)
  - ABNORMAL BEHAVIOUR [None]
